FAERS Safety Report 8806387 (Version 2)
Quarter: 2012Q4

REPORT INFORMATION
  Report Type: 
  Country: US (occurrence: US)
  Receive Date: 20120925
  Receipt Date: 20121001
  Transmission Date: 20130627
  Serious: Yes (Other)
  Sender: FDA-Public Use
  Company Number: US-BAYER-2012-086547

PATIENT
  Age: 51 Year
  Sex: Female
  Weight: 84.82 kg

DRUGS (1)
  1. MIRENA [Suspect]
     Indication: MENORRHAGIA
     Dosage: 20 ?g/d, CONT
     Route: 015
     Dates: start: 20120601, end: 20120827

REACTIONS (17)
  - Post procedural haemorrhage [None]
  - Vaginal haemorrhage [None]
  - Anaemia [None]
  - Headache [None]
  - Neck pain [None]
  - Uterine infection [None]
  - Pyrexia [None]
  - Vaginal odour [None]
  - Pain [None]
  - Muscle spasms [None]
  - Migraine [None]
  - Fatigue [None]
  - Malaise [None]
  - Dyspnoea [None]
  - Abdominal distension [None]
  - Weight increased [None]
  - Metrorrhagia [None]
